FAERS Safety Report 11625878 (Version 2)
Quarter: 2015Q4

REPORT INFORMATION
  Report Type: Spontaneous
  Country: HK (occurrence: HK)
  Receive Date: 20151013
  Receipt Date: 20151201
  Transmission Date: 20160304
  Serious: Yes (Death, Hospitalization, Other)
  Sender: FDA-Public Use
  Company Number: HK-AMGEN-HKGSP2015106684

PATIENT
  Age: 44 Year
  Sex: Female
  Weight: 55 kg

DRUGS (3)
  1. THALIDOMIDE [Concomitant]
     Active Substance: THALIDOMIDE
     Dosage: 200 MG, NOCTE
     Route: 048
     Dates: start: 20150929, end: 20151001
  2. KYPROLIS [Suspect]
     Active Substance: CARFILZOMIB
     Indication: PLASMA CELL MYELOMA
     Dosage: 27 MG, UNK
     Route: 042
     Dates: start: 20150929, end: 20150930
  3. DEXAMETHASONE. [Concomitant]
     Active Substance: DEXAMETHASONE
     Dosage: 20 MG, 2 TIMES/WK
     Route: 048
     Dates: start: 20150929, end: 20151001

REACTIONS (5)
  - Disseminated intravascular coagulation [Fatal]
  - Myalgia [Unknown]
  - Acute hepatic failure [Fatal]
  - Pneumonia [Unknown]
  - Haemolysis [Unknown]

NARRATIVE: CASE EVENT DATE: 20150929
